FAERS Safety Report 7001570-X (Version None)
Quarter: 2010Q3

REPORT INFORMATION
  Report Type: 
  Country: None (occurrence: None)
  Receive Date: 20100920
  Receipt Date: 20100914
  Transmission Date: 20110219
  Serious: Yes (Death)
  Sender: FDA-Public Use
  Company Number: US-CELGENEUS-163-21880-10081435

PATIENT
  Sex: Female

DRUGS (3)
  1. REVLIMID [Suspect]
     Route: 048
     Dates: start: 20080415, end: 20080722
  2. REVLIMID [Suspect]
     Route: 048
     Dates: end: 20091012
  3. PROCRIT [Concomitant]
     Dosage: 60K
     Route: 058
     Dates: start: 20071211, end: 20090224

REACTIONS (1)
  - MYELODYSPLASTIC SYNDROME [None]
